APPROVED DRUG PRODUCT: LISINOPRIL
Active Ingredient: LISINOPRIL
Strength: 10MG
Dosage Form/Route: TABLET;ORAL
Application: A076063 | Product #003
Applicant: HIKMA INTERNATIONAL PHARMACEUTICALS LLC
Approved: Jul 1, 2002 | RLD: No | RS: No | Type: DISCN